FAERS Safety Report 4796231-1 (Version None)
Quarter: 2005Q4

REPORT INFORMATION
  Report Type: 
  Country: None (occurrence: None)
  Receive Date: 20051013
  Receipt Date: 20050624
  Transmission Date: 20060501
  Serious: Yes (Other)
  Sender: FDA-Public Use
  Company Number: US-BOEHRINGER INGELHEIM PHARMACEUTICALS, INC.-2005-BP-10770BP

PATIENT
  Age: 77 Year
  Sex: Male

DRUGS (3)
  1. FLOMAX [Suspect]
     Indication: BENIGN PROSTATIC HYPERPLASIA
     Dosage: 2 TIME A DAY
     Route: 048
     Dates: start: 20030601
  2. LIQUID MORPHINE [Concomitant]
     Indication: PAIN
  3. PATCH [Concomitant]
     Indication: PAIN

REACTIONS (1)
  - LUNG NEOPLASM MALIGNANT [None]
